FAERS Safety Report 5020662-8 (Version None)
Quarter: 2006Q2

REPORT INFORMATION
  Report Type: 
  Country: None (occurrence: None)
  Receive Date: 20060602
  Receipt Date: 20060515
  Transmission Date: 20061013
  Serious: No
  Sender: FDA-Public Use
  Company Number: US200604001515

PATIENT
  Age: 84 Year
  Sex: Female
  Weight: 52.6 kg

DRUGS (1)
  1. EVISTA [Suspect]
     Indication: OSTEOPOROSIS
     Dosage: 60 MG, OTHER
     Dates: start: 19980101

REACTIONS (1)
  - NO ADVERSE DRUG EFFECT [None]
